FAERS Safety Report 16672740 (Version 1)
Quarter: 2019Q3

REPORT INFORMATION
  Report Type: Spontaneous
  Country: US (occurrence: US)
  Receive Date: 20190806
  Receipt Date: 20190806
  Transmission Date: 20191004
  Serious: Yes (Other)
  Sender: FDA-Public Use
  Company Number: US-GLAXOSMITHKLINE-US2019141428

PATIENT
  Sex: Female

DRUGS (2)
  1. FLOVENT [Suspect]
     Active Substance: FLUTICASONE PROPIONATE
     Indication: PRODUCT USED FOR UNKNOWN INDICATION
     Dosage: UNK, ONE PUFF IN THE MORNING AND TWO PUFFS IN THE EVENING
     Route: 065
  2. VENTOLIN HFA [Suspect]
     Active Substance: ALBUTEROL SULFATE
     Indication: PRODUCT USED FOR UNKNOWN INDICATION
     Dosage: 2 PUFF(S), PRN, EVERY 4 HOURS
     Route: 065

REACTIONS (6)
  - Sternal fracture [Unknown]
  - Fall [Unknown]
  - Pneumonia [Recovered/Resolved]
  - Rib fracture [Unknown]
  - Pulmonary contusion [Unknown]
  - Wrong technique in product usage process [Unknown]
